FAERS Safety Report 20196395 (Version 2)
Quarter: 2021Q4

REPORT INFORMATION
  Report Type: Spontaneous
  Country: BE (occurrence: BE)
  Receive Date: 20211216
  Receipt Date: 20211229
  Transmission Date: 20220304
  Serious: Yes (Hospitalization)
  Sender: FDA-Public Use
  Company Number: BE-TEVA-2021-BE-1986883

PATIENT
  Age: 8 Year
  Sex: Male

DRUGS (24)
  1. CARBOPLATIN [Suspect]
     Active Substance: CARBOPLATIN
     Indication: Anaplastic large-cell lymphoma
     Dosage: 200 MG/M2 DAILY; CONTINUOUS INFUSION OVER 4 DAYS
     Route: 041
     Dates: start: 20190208
  2. DOXORUBICIN [Suspect]
     Active Substance: DOXORUBICIN
     Indication: Anaplastic large-cell lymphoma
     Dosage: 25MG/M2 ON DAYS 4-5; OVER 1 HR (BM COURSE)
     Route: 042
  3. METHOTREXATE [Suspect]
     Active Substance: METHOTREXATE
     Indication: Anaplastic large-cell lymphoma
     Dosage: 12MG ON DAY 1
     Route: 037
     Dates: start: 20181122
  4. METHOTREXATE [Suspect]
     Active Substance: METHOTREXATE
     Dosage: 12MG DAY 1
     Route: 037
     Dates: start: 20190208
  5. METHOTREXATE [Suspect]
     Active Substance: METHOTREXATE
     Dosage: 3 G/M2 OVER 3 HR (AM COURSE)
     Route: 042
  6. METHOTREXATE [Suspect]
     Active Substance: METHOTREXATE
     Dosage: 3 G/M2 OVER 3 HR (BM COURSE); DAY 1
     Route: 042
  7. ETOPOSIDE [Suspect]
     Active Substance: ETOPOSIDE
     Indication: Anaplastic large-cell lymphoma
     Dosage: 100MG/M2 ON DAYS 4-5; OVER 2 HR (AM COURSE)
     Route: 042
  8. VINBLASTINE [Suspect]
     Active Substance: VINBLASTINE
     Indication: Anaplastic large-cell lymphoma
     Dosage: 6MG/M2 WEEKLY ONCE
     Route: 042
     Dates: start: 20190228
  9. DEXAMETHASONE [Suspect]
     Active Substance: DEXAMETHASONE
     Indication: Anaplastic large-cell lymphoma
     Dosage: 5 MG/M2 DAILY; DAYS 1-2
     Route: 048
     Dates: start: 20181122
  10. DEXAMETHASONE [Suspect]
     Active Substance: DEXAMETHASONE
     Dosage: 10 MG/M2 DAILY; DAYS 3-5
     Route: 048
  11. DEXAMETHASONE [Suspect]
     Active Substance: DEXAMETHASONE
     Dosage: 10 MG/M2 DAILY; AM COURSE (DAYS 1-5)
     Route: 048
  12. DEXAMETHASONE [Suspect]
     Active Substance: DEXAMETHASONE
     Dosage: 10 MG/M2 DAILY; DAYS 1-5 (BM COURSE)
     Route: 048
  13. CYTARABINE [Suspect]
     Active Substance: CYTARABINE
     Indication: Anaplastic large-cell lymphoma
     Dosage: 30MG ON DAY 1
     Route: 037
     Dates: start: 20181122
  14. CYTARABINE [Suspect]
     Active Substance: CYTARABINE
     Dosage: 30MG ON DAY 1
     Route: 037
     Dates: start: 20190208
  15. CYTARABINE [Suspect]
     Active Substance: CYTARABINE
     Dosage: 300 MG/M2 DAILY; ON DAYS 4-5; OVER 1 HR EVERY 12 HR (AM COURSE)
     Route: 042
  16. HYDROCORTISONE [Suspect]
     Active Substance: HYDROCORTISONE
     Indication: Anaplastic large-cell lymphoma
     Dosage: 10MG ON DAY 1
     Route: 037
     Dates: start: 20181122
  17. CYCLOPHOSPHAMIDE [Suspect]
     Active Substance: CYCLOPHOSPHAMIDE
     Indication: Anaplastic large-cell lymphoma
     Dosage: 200MG/M2 OVER 1 HOUR; ON DAY 1-2 (PRE-PHASE)
     Route: 042
     Dates: start: 20181122
  18. CYCLOPHOSPHAMIDE [Suspect]
     Active Substance: CYCLOPHOSPHAMIDE
     Dosage: 200MG/M2 OVER 1 HOUR; ON DAYS 1-5 (BM COURSE)
     Route: 042
  19. IFOSFAMIDE [Suspect]
     Active Substance: IFOSFAMIDE
     Indication: Anaplastic large-cell lymphoma
     Dosage: 800MG/M2 ON DAYS 1-5, OVER 1HR (AM COURSE)
     Route: 042
  20. IFOSFAMIDE [Suspect]
     Active Substance: IFOSFAMIDE
     Dosage: 2 G/M2 DAILY CONTINUOUS INFUSION OVER 5 DAYS
     Route: 041
     Dates: start: 20190208
  21. PREDNISOLONE [Suspect]
     Active Substance: PREDNISOLONE
     Indication: Anaplastic large-cell lymphoma
     Dosage: 10MG ON DAYS 1
     Route: 037
     Dates: start: 20190208
  22. MITOXANTRONE [Suspect]
     Active Substance: MITOXANTRONE HYDROCHLORIDE
     Indication: Anaplastic large-cell lymphoma
     Dosage: 8 MG/M2 DAILY; OVER 30 MINUTES
     Route: 042
     Dates: start: 20190208
  23. CRIZOTINIB [Suspect]
     Active Substance: CRIZOTINIB
     Indication: Anaplastic large-cell lymphoma
     Dosage: 560 MG/M2 DAILY;
     Route: 048
     Dates: start: 20190215
  24. CRIZOTINIB [Suspect]
     Active Substance: CRIZOTINIB
     Dosage: 560 MG/M2 DAILY; NASOGASTRIC
     Route: 065
     Dates: start: 20190228

REACTIONS (18)
  - Myelosuppression [Unknown]
  - Neutropenia [Unknown]
  - Mucosal inflammation [Unknown]
  - Bacteraemia [Unknown]
  - Staphylococcal infection [Unknown]
  - Alpha haemolytic streptococcal infection [Unknown]
  - Pseudomonas infection [Unknown]
  - Enterococcal infection [Unknown]
  - Decreased appetite [Unknown]
  - Vomiting [Unknown]
  - Diarrhoea [Unknown]
  - Renal haemorrhage [Unknown]
  - Renal failure [Unknown]
  - Cystitis haemorrhagic [Unknown]
  - Epidermal necrosis [Unknown]
  - Neutropenic colitis [Unknown]
  - Toxicity to various agents [Unknown]
  - Off label use [Unknown]
